FAERS Safety Report 15413095 (Version 1)
Quarter: 2018Q4

REPORT INFORMATION
  Report Type: Spontaneous
  Country: DK (occurrence: DK)
  Receive Date: 20180921
  Receipt Date: 20180921
  Transmission Date: 20190204
  Serious: Yes (Disabling)
  Sender: FDA-Public Use
  Company Number: DK-TEVA-2018-DK-957215

PATIENT
  Age: 38 Year
  Sex: Male
  Weight: 85 kg

DRUGS (1)
  1. TETRACYCLIN ^ACTAVIS^ [Suspect]
     Active Substance: TETRACYCLINE
     Indication: BLEPHARITIS
     Dosage: 500 MILLIGRAM DAILY; STYRKE: 500 MG
     Route: 048
     Dates: start: 20171115, end: 20180324

REACTIONS (4)
  - Oral candidiasis [Recovered/Resolved]
  - Depression [Recovered/Resolved]
  - Weight decreased [Recovered/Resolved]
  - Gastrointestinal candidiasis [Recovered/Resolved]

NARRATIVE: CASE EVENT DATE: 20180131
